FAERS Safety Report 5266325-5 (Version None)
Quarter: 2007Q1

REPORT INFORMATION
  Report Type: 
  Country: None (occurrence: None)
  Receive Date: 20070315
  Receipt Date: 20070313
  Transmission Date: 20070707
  Serious: Yes (Other)
  Sender: FDA-Public Use
  Company Number: GB-ALLERGAN-0702528US

PATIENT

DRUGS (1)
  1. BOTOX 100 UNITS [Suspect]
     Indication: DRUG USE FOR UNKNOWN INDICATION
     Dosage: UNK, SINGLE
     Dates: start: 20070307, end: 20070307

REACTIONS (2)
  - DEHYDRATION [None]
  - DYSPHAGIA [None]
